FAERS Safety Report 8877314 (Version 1)
Quarter: 2012Q4

REPORT INFORMATION
  Report Type: 
  Country: US (occurrence: US)
  Receive Date: 20121023
  Receipt Date: 20121023
  Transmission Date: 20130627
  Serious: No
  Sender: FDA-Public Use
  Company Number: US-AMGEN-USASP2012059386

PATIENT
  Age: 54 Year
  Sex: Male
  Weight: 140.59 kg

DRUGS (25)
  1. ENBREL [Suspect]
     Indication: PRODUCT USED FOR UNKNOWN INDICATION
     Dosage: 50 mg, qwk
  2. SINGULAIR [Concomitant]
     Dosage: 10 mg, UNK
  3. NUMOISYN [Concomitant]
     Dosage: UNK
  4. TYLENOL /00020001/ [Concomitant]
     Dosage: 500 mg, UNK
  5. NITROGLYCERIN [Concomitant]
     Dosage: 2.5 mg, UNK
  6. COQ-10 [Concomitant]
     Dosage: 100 mg, UNK
  7. SPIRONOLACTON [Concomitant]
     Dosage: 25 mg, UNK
  8. SIMVASTATIN [Concomitant]
     Dosage: 10 mg, UNK
  9. PLAVIX [Concomitant]
     Dosage: 75 mg, UNK
  10. COUMADIN                           /00014802/ [Concomitant]
     Dosage: 1 mg, UNK
  11. LISINOPRIL [Concomitant]
     Dosage: 10 mg, UNK
  12. KLOR-CON [Concomitant]
     Dosage: 20 mEq, UNK
  13. LASIX                              /00032601/ [Concomitant]
     Dosage: 40 mg, UNK
  14. ZYRTEC-D [Concomitant]
     Dosage: 5/120 mg
  15. ALLEGRA D [Concomitant]
     Dosage: UNK UNK, q12h
  16. VITAMIN D /00107901/ [Concomitant]
     Dosage: 1000 unit, UNK
  17. CALCIUM + VIT D [Concomitant]
     Dosage: UNK
  18. FISH OIL [Concomitant]
     Dosage: 1000 mg, UNK
  19. VITAMIN E                          /00110501/ [Concomitant]
     Dosage: 400 unit, UNK
  20. MULTIVITAMINS [Concomitant]
     Dosage: UNK
  21. MINERALS NOS [Concomitant]
     Dosage: UNK
  22. ARAVA [Concomitant]
     Dosage: 20 mg, UNK
  23. CLARITIN-D [Concomitant]
     Dosage: 10-240 mg
  24. ASPIRIN [Concomitant]
     Dosage: 325 mg, UNK
  25. LEVOTHYROXIN [Concomitant]
     Dosage: 300 mcg, UNK

REACTIONS (1)
  - Sinusitis [Unknown]
